FAERS Safety Report 9523974 (Version 1)
Quarter: 2013Q4

REPORT INFORMATION
  Report Type: Spontaneous
  Country: US (occurrence: None)
  Receive Date: 20130912
  Receipt Date: 20130912
  Transmission Date: 20140711
  Serious: Yes (Hospitalization)
  Sender: FDA-Public Use
  Company Number: None

PATIENT
  Age: 65 Year
  Sex: Female
  Weight: 76.7 kg

DRUGS (2)
  1. EPIRUBICIN - 50MG/25ML (MFR: SAGENT) [Suspect]
     Indication: BREAST CANCER
     Dosage: 166MG IV EVERY 3 WEEKS
     Route: 042
     Dates: start: 20130510, end: 20130719
  2. CYCLOPHOSPHAMIDE - STRENGTH UNKNOWN (MFR: BAXTER) [Suspect]
     Indication: BREAST CANCER
     Dosage: 1,104MG IV EVERY 3 WEEKS
     Route: 042
     Dates: start: 20130510, end: 20130719

REACTIONS (1)
  - Obstructive uropathy [None]
